FAERS Safety Report 8274166-X (Version None)
Quarter: 2012Q2

REPORT INFORMATION
  Report Type: 
  Country: None (occurrence: None)
  Receive Date: 20120406
  Receipt Date: 20120406
  Transmission Date: 20120825
  Serious: Yes (Other)
  Sender: FDA-Public Use
  Company Number: None

PATIENT
  Age: 65 Year
  Sex: Male
  Weight: 81.6475 kg

DRUGS (3)
  1. ATENOLOL [Concomitant]
  2. VYTORIN [Concomitant]
  3. COOL MINT LISTERINE POCKETMIST (ORAL CARE PRODUCTS) SPRAY [Suspect]
     Indication: BREATH ODOUR
     Dosage: ONE SPRAY 12 TO 15 TIMES PER DAY ORAL
     Route: 048
     Dates: start: 20111001, end: 20120301

REACTIONS (3)
  - GASTRITIS [None]
  - PHARYNGEAL INFLAMMATION [None]
  - NAUSEA [None]
